FAERS Safety Report 5956794-7 (Version None)
Quarter: 2008Q4

REPORT INFORMATION
  Report Type: 
  Country: None (occurrence: None)
  Receive Date: 20081118
  Receipt Date: 20081106
  Transmission Date: 20090506
  Serious: Yes (Other)
  Sender: FDA-Public Use
  Company Number: US-AVENTIS-200811777US

PATIENT
  Sex: Female
  Weight: 164 kg

DRUGS (35)
  1. KETEK [Suspect]
     Indication: ASTHMA
     Dosage: DOSE: UNK
     Dates: start: 20041008
  2. KETEK [Suspect]
     Dosage: DOSE: UNK
     Dates: start: 20041124, end: 20041101
  3. KETEK [Suspect]
     Dosage: DOSE: UNK
     Dates: start: 20041215, end: 20041201
  4. KETEK [Suspect]
     Dosage: DOSE: UNK
     Dates: start: 20050128, end: 20050101
  5. KETEK [Suspect]
     Dosage: DOSE: UNK
     Dates: start: 20050306, end: 20050301
  6. KETEK [Suspect]
     Dosage: DOSE: UNK
     Dates: start: 20050325, end: 20050101
  7. KETEK [Suspect]
     Dosage: DOSE: UNK
     Dates: start: 20050706, end: 20050701
  8. KETEK [Suspect]
     Dosage: DOSE: UNK
     Dates: start: 20041008
  9. KETEK [Suspect]
     Dosage: DOSE: UNK
     Dates: start: 20041124, end: 20041101
  10. KETEK [Suspect]
     Dosage: DOSE: UNK
     Dates: start: 20041215, end: 20041201
  11. KETEK [Suspect]
     Dosage: DOSE: UNK
     Dates: start: 20050128, end: 20050101
  12. KETEK [Suspect]
     Dosage: DOSE: UNK
     Dates: start: 20050306, end: 20050301
  13. KETEK [Suspect]
     Dosage: DOSE: UNK
     Dates: start: 20050325, end: 20050101
  14. KETEK [Suspect]
     Dosage: DOSE: UNK
     Dates: start: 20050706, end: 20050701
  15. TOPAMAX [Concomitant]
     Dosage: DOSE: UNK
  16. DIOVANE [Concomitant]
     Dosage: DOSE: UNK
  17. SYNTHROID [Concomitant]
     Dosage: DOSE: UNK
  18. ZYRTEC [Concomitant]
     Dosage: DOSE: UNK
  19. ACIPHEX [Concomitant]
     Dosage: DOSE: UNK
  20. NORVASC [Concomitant]
     Dosage: DOSE: UNK
  21. ELAVIL [Concomitant]
     Dosage: DOSE: UNK
  22. INSULIN [Concomitant]
     Dosage: DOSE: UNK
  23. PULMICORT-100 [Concomitant]
  24. FORADIL [Concomitant]
     Dosage: DOSE: UNK
  25. ALBUTEROL [Concomitant]
  26. DIOVAN HCT [Concomitant]
     Dosage: DOSE: UNK
  27. HUMALOG [Concomitant]
     Dosage: DOSE: UNK
  28. LANTUS [Concomitant]
     Dosage: DOSE: UNK
  29. HYDROMET                           /00000101/ [Concomitant]
     Dosage: DOSE: UNK
     Dates: start: 20041215
  30. METHYLPREDNISOLONE 16MG TAB [Concomitant]
     Dosage: DOSE: UNK
     Dates: start: 20041215
  31. HYDROXYZINE HCL [Concomitant]
     Dosage: DOSE: UNK
  32. FLECAINIDE ACETATE [Concomitant]
     Dosage: DOSE: UNK
  33. CLONIDINE [Concomitant]
     Dosage: DOSE: UNK
  34. DIGOXIN [Concomitant]
     Dosage: DOSE: UNK
  35. DILTIAZEM XR [Concomitant]
     Dosage: DOSE: UNK

REACTIONS (31)
  - ABDOMINAL HERNIA [None]
  - ANAEMIA [None]
  - ARRHYTHMIA [None]
  - BACTERAEMIA [None]
  - CARDIAC FAILURE CONGESTIVE [None]
  - CHOLECYSTITIS CHRONIC [None]
  - DIARRHOEA [None]
  - ENDOMETRIAL CANCER [None]
  - ESCHERICHIA SEPSIS [None]
  - GALLBLADDER CHOLESTEROLOSIS [None]
  - GASTRITIS EROSIVE [None]
  - HAEMANGIOMA OF LIVER [None]
  - HAEMATOMA [None]
  - HAEMATURIA [None]
  - HAEMORRHOIDS [None]
  - HEPATIC STEATOSIS [None]
  - HYPOPHAGIA [None]
  - IMPAIRED HEALING [None]
  - ISCHAEMIC STROKE [None]
  - LEUKOCYTOSIS [None]
  - LOCALISED OEDEMA [None]
  - LYMPHADENOPATHY [None]
  - OESOPHAGITIS [None]
  - OTITIS MEDIA [None]
  - POST PROCEDURAL COMPLICATION [None]
  - POST PROCEDURAL HAEMORRHAGE [None]
  - POSTNASAL DRIP [None]
  - RENAL FAILURE ACUTE [None]
  - SEPSIS [None]
  - UROSEPSIS [None]
  - WEIGHT DECREASED [None]
